FAERS Safety Report 23733388 (Version 2)
Quarter: 2024Q2

REPORT INFORMATION
  Report Type: Spontaneous
  Country: US (occurrence: US)
  Receive Date: 20240411
  Receipt Date: 20240502
  Transmission Date: 20240715
  Serious: Yes (Other)
  Sender: FDA-Public Use
  Company Number: US-AMERICAN REGENT INC-2024001212

PATIENT
  Age: 64 Year
  Sex: Female

DRUGS (9)
  1. GEMCITABINE [Suspect]
     Active Substance: GEMCITABINE
     Indication: Adenocarcinoma pancreas
     Dosage: TREATED WITH ADJUVANT CONCURRENT CHEMORADIATION WITH WEEKLY GEMCITABINE
     Route: 065
     Dates: start: 202112, end: 202201
  2. GEMCITABINE [Suspect]
     Active Substance: GEMCITABINE
     Dosage: GEMCITABINE /NAB-PACLITAXEL
     Route: 065
     Dates: start: 202210, end: 202212
  3. GEMCITABINE [Suspect]
     Active Substance: GEMCITABINE
     Dosage: 1,000-600 MG/M2, ADJUSTED PER CYTOPENIA; FIRST 2 CYCLE DAYS 1, 8, AND 15 OF 28-DAY CYCLE, CYCLES 3,
     Route: 065
     Dates: start: 202212, end: 202307
  4. PACLITAXEL [Suspect]
     Active Substance: PACLITAXEL
     Indication: Adenocarcinoma pancreas
     Dosage: GEMCITABINE /NAB-PACLITAXEL
     Route: 065
     Dates: start: 202210, end: 202212
  5. LEUCOVORIN CALCIUM [Suspect]
     Active Substance: LEUCOVORIN CALCIUM
     Indication: Adenocarcinoma pancreas
     Dosage: 12 CYCLES OF FOLFIRINOX (LEUCOVORIN CALCIUM FOLINIC ACID], FLUOROURACIL, IRINOTECAN, OXALIPLATIN)
     Route: 065
     Dates: start: 202104, end: 202110
  6. OXALIPLATIN [Suspect]
     Active Substance: OXALIPLATIN
     Indication: Adenocarcinoma pancreas
     Dosage: 12 CYCLES OF FOLFIRINOX12 CYCLES OF FOLFIRINOX (LEUCOVORIN CALCIUM FOLINIC ACID], FLUOROURACIL, IRIN
     Route: 065
     Dates: start: 202104, end: 202110
  7. FLUOROURACIL [Suspect]
     Active Substance: FLUOROURACIL
     Indication: Adenocarcinoma pancreas
     Dosage: 12 CYCLES OF FOLFIRINOX12 CYCLES OF FOLFIRINOX (LEUCOVORIN CALCIUM FOLINIC ACID], FLUOROURACIL, IRIN
     Route: 065
     Dates: start: 202104, end: 202110
  8. IRINOTECAN [Suspect]
     Active Substance: IRINOTECAN
     Indication: Adenocarcinoma pancreas
     Dosage: 12 CYCLES OF FOLFIRINOX (LEUCOVORIN CALCIUM FOLINIC ACID], FLUOROURACIL, IRINOTECAN, OXALIPLATIN)
     Route: 065
     Dates: start: 202104, end: 202110
  9. ERLOTINIB [Suspect]
     Active Substance: ERLOTINIB
     Indication: Adenocarcinoma pancreas
     Dosage: 100 MILLIGRAM, QD
     Route: 065
     Dates: start: 202212, end: 202307

REACTIONS (7)
  - Drug ineffective [Not Recovered/Not Resolved]
  - Pancreatic carcinoma metastatic [Not Recovered/Not Resolved]
  - Drug ineffective for unapproved indication [Not Recovered/Not Resolved]
  - Adenocarcinoma pancreas [Not Recovered/Not Resolved]
  - Pneumonitis [Recovered/Resolved]
  - Cytopenia [Unknown]
  - Product use in unapproved indication [Unknown]

NARRATIVE: CASE EVENT DATE: 20210401
